FAERS Safety Report 23688326 (Version 1)
Quarter: 2024Q1

REPORT INFORMATION
  Report Type: Spontaneous
  Country: AU (occurrence: AU)
  Receive Date: 20240329
  Receipt Date: 20240329
  Transmission Date: 20240410
  Serious: Yes (Other)
  Sender: FDA-Public Use
  Company Number: AU-SUN PHARMACEUTICAL INDUSTRIES LTD-2023R1-435740

PATIENT
  Age: 54 Year
  Sex: Male

DRUGS (1)
  1. HYDROCHLOROTHIAZIDE\IRBESARTAN [Suspect]
     Active Substance: HYDROCHLOROTHIAZIDE\IRBESARTAN
     Indication: Product used for unknown indication
     Dosage: UNK
     Route: 065

REACTIONS (5)
  - Deafness unilateral [Unknown]
  - Chest pain [Unknown]
  - Cognitive disorder [Unknown]
  - Dyspnoea [Unknown]
  - Hyperhidrosis [Unknown]
